FAERS Safety Report 23642509 (Version 1)
Quarter: 2024Q1

REPORT INFORMATION
  Report Type: Spontaneous
  Country: US (occurrence: US)
  Receive Date: 20240318
  Receipt Date: 20240318
  Transmission Date: 20240409
  Serious: Yes (Other)
  Sender: FDA-Public Use
  Company Number: US-AMGEN-USASP2024050870

PATIENT
  Age: 78 Year
  Sex: Female

DRUGS (1)
  1. PROLIA [Suspect]
     Active Substance: DENOSUMAB
     Indication: Osteoporosis postmenopausal
     Dosage: UNK UNK, Q6MO (EVERY 6 MONTHS)
     Route: 065
     Dates: start: 202309

REACTIONS (6)
  - Rheumatoid arthritis [Unknown]
  - Micrographic skin surgery [Unknown]
  - Postoperative wound infection [Not Recovered/Not Resolved]
  - Peripheral arterial occlusive disease [Unknown]
  - Headache [Recovered/Resolved]
  - Impaired healing [Not Recovered/Not Resolved]

NARRATIVE: CASE EVENT DATE: 20240307
